FAERS Safety Report 5405695-1 (Version None)
Quarter: 2007Q3

REPORT INFORMATION
  Report Type: 
  Country: None (occurrence: None)
  Receive Date: 20070806
  Receipt Date: 20070727
  Transmission Date: 20080115
  Serious: Yes (Hospitalization, Other)
  Sender: FDA-Public Use
  Company Number: PHEH2007US10519

PATIENT
  Age: 53 Year
  Sex: Female
  Weight: 68.027 kg

DRUGS (8)
  1. ESTRADERM [Suspect]
     Indication: MENOPAUSAL SYMPTOMS
     Dosage: 0.5 MG, UNK
     Route: 062
     Dates: start: 19940301, end: 19940401
  2. ESTRADERM [Suspect]
     Dosage: 0.5 MG, UNK
     Route: 062
     Dates: start: 19940601, end: 19950301
  3. PREMARIN [Suspect]
     Indication: MENOPAUSAL SYMPTOMS
     Dosage: 0.625 MG, UNK
     Route: 048
     Dates: start: 19940201, end: 19940401
  4. PREMARIN [Suspect]
     Dosage: 0.625 MG, UNK
     Route: 048
     Dates: start: 19950701, end: 19950901
  5. PROVERA [Suspect]
     Indication: MENOPAUSAL SYMPTOMS
     Dosage: 10 MG, UNK
     Route: 048
     Dates: start: 19910401, end: 19910401
  6. PROVERA [Suspect]
     Dosage: 10 MG, UNK
     Route: 048
     Dates: start: 19940201, end: 19961201
  7. ESTRACE [Suspect]
     Indication: MENOPAUSE
     Dosage: 5 MG, UNK
     Route: 048
     Dates: start: 19950301, end: 19950301
  8. ESTRACE [Suspect]
     Dosage: 5 MG, UNK
     Route: 048
     Dates: start: 19950901, end: 19961201

REACTIONS (33)
  - BASAL CELL CARCINOMA [None]
  - BIOPSY ENDOMETRIUM [None]
  - BLOOD CHOLESTEROL INCREASED [None]
  - BLOOD TRIGLYCERIDES INCREASED [None]
  - BREAST CANCER [None]
  - BREAST CANCER IN SITU [None]
  - BREAST CYST [None]
  - BREAST MICROCALCIFICATION [None]
  - BREAST RECONSTRUCTION [None]
  - CEREBROVASCULAR ACCIDENT [None]
  - DIABETES MELLITUS [None]
  - EXPLORATORY OPERATION [None]
  - HYPOAESTHESIA [None]
  - HYPOAESTHESIA FACIAL [None]
  - HYSTEROSCOPY [None]
  - LOW DENSITY LIPOPROTEIN INCREASED [None]
  - MALIGNANT TUMOUR EXCISION [None]
  - MAMMOGRAM ABNORMAL [None]
  - MEDICAL DEVICE COMPLICATION [None]
  - MEDICAL DEVICE IMPLANTATION [None]
  - MODIFIED RADICAL MASTECTOMY [None]
  - NEOPLASM PROPHYLAXIS [None]
  - NUCLEAR MAGNETIC RESONANCE IMAGING ABNORMAL [None]
  - OESTROGEN RECEPTOR ASSAY POSITIVE [None]
  - POSTMENOPAUSAL HAEMORRHAGE [None]
  - PROGESTERONE RECEPTOR ASSAY POSITIVE [None]
  - SINUSITIS [None]
  - SKIN NEOPLASM EXCISION [None]
  - SQUAMOUS CELL CARCINOMA OF SKIN [None]
  - TENDERNESS [None]
  - TRANSIENT ISCHAEMIC ATTACK [None]
  - UTERINE DILATION AND CURETTAGE [None]
  - UTERINE POLYP [None]
